FAERS Safety Report 20383462 (Version 7)
Quarter: 2022Q2

REPORT INFORMATION
  Report Type: Report from Study
  Country: US (occurrence: US)
  Receive Date: 20220127
  Receipt Date: 20220531
  Transmission Date: 20220721
  Serious: Yes (Other)
  Sender: FDA-Public Use
  Company Number: US-NOVARTISPH-NVSC2022US016878

PATIENT
  Sex: Male

DRUGS (2)
  1. ENTRESTO [Suspect]
     Active Substance: SACUBITRIL\VALSARTAN
     Indication: Product used for unknown indication
     Dosage: 1 DOSAGE FORM, BID
     Route: 048
  2. QUINAPRIL [Suspect]
     Active Substance: QUINAPRIL
     Indication: Product used for unknown indication
     Dosage: UNK
     Route: 065

REACTIONS (9)
  - Ejection fraction decreased [Unknown]
  - Sensitive skin [Unknown]
  - Upper-airway cough syndrome [Unknown]
  - Weight decreased [Unknown]
  - Throat clearing [Unknown]
  - Glycosylated haemoglobin decreased [Unknown]
  - Pruritus [Unknown]
  - Cough [Unknown]
  - Contraindicated product administered [Unknown]
